FAERS Safety Report 4750181-5 (Version None)
Quarter: 2005Q3

REPORT INFORMATION
  Report Type: 
  Country: None (occurrence: None)
  Receive Date: 20050823
  Receipt Date: 20050811
  Transmission Date: 20060218
  Serious: Yes (Other)
  Sender: FDA-Public Use
  Company Number: US-JNJFOC-20031002278

PATIENT
  Age: 13 Year
  Sex: Male
  Weight: 50.8 kg

DRUGS (17)
  1. REMICADE [Suspect]
     Route: 042
     Dates: end: 20030930
  2. REMICADE [Suspect]
     Route: 042
     Dates: end: 20030930
  3. REMICADE [Suspect]
     Route: 042
     Dates: end: 20030930
  4. REMICADE [Suspect]
     Route: 042
     Dates: end: 20030930
  5. REMICADE [Suspect]
     Route: 042
     Dates: end: 20030930
  6. REMICADE [Suspect]
     Indication: CROHN'S DISEASE
     Route: 042
     Dates: end: 20030930
  7. PENTASA [Concomitant]
  8. 6-MP [Concomitant]
     Dosage: DECREASED FROM 75 MG
  9. PRILOSEC [Concomitant]
  10. MULTI-VITAMIN [Concomitant]
  11. MULTI-VITAMIN [Concomitant]
  12. MULTI-VITAMIN [Concomitant]
  13. MULTI-VITAMIN [Concomitant]
  14. MULTI-VITAMIN [Concomitant]
  15. MULTI-VITAMIN [Concomitant]
  16. MULTI-VITAMIN [Concomitant]
  17. MULTI-VITAMIN [Concomitant]

REACTIONS (1)
  - LUPUS-LIKE SYNDROME [None]
